FAERS Safety Report 8913102 (Version 1)
Quarter: 2012Q4

REPORT INFORMATION
  Report Type: Spontaneous
  Country: BR (occurrence: None)
  Receive Date: 20121113
  Receipt Date: 20121113
  Transmission Date: 20130627
  Serious: Yes (Other)
  Sender: FDA-Public Use
  Company Number: 2012-004009

PATIENT
  Sex: Female

DRUGS (1)
  1. ACTONEL (RISEDRONATE SODIUM) TABLET, 150MG [Suspect]
     Indication: OSTEOPENIA
     Route: 048
     Dates: start: 201109

REACTIONS (3)
  - Tendonitis [None]
  - Flatulence [None]
  - Pain in extremity [None]
